FAERS Safety Report 6802115 (Version 3)
Quarter: 2013Q1

REPORT INFORMATION
  Report Type: Spontaneous
  Country: NO (occurrence: None)
  Receive Date: 20081120
  Receipt Date: 20130117
  Transmission Date: 20140127
  Serious: Yes (Other)
  Sender: FDA-Public Use
  Company Number: 2008AP002783

PATIENT
  Sex: Female

DRUGS (2)
  1. CARBAMAZEPINE [Suspect]
  2. LAMOTRIGINE (LAMOTRIGINE) [Suspect]

REACTIONS (3)
  - DRUG HYPERSENSITIVITY [None]
  - RASH [None]
  - PYREXIA [None]
